FAERS Safety Report 10439468 (Version 2)
Quarter: 2014Q3

REPORT INFORMATION
  Report Type: Spontaneous
  Country: US (occurrence: US)
  Receive Date: 20140908
  Receipt Date: 20140908
  Transmission Date: 20150326
  Serious: No
  Sender: FDA-Public Use
  Company Number: US-BRISTOL-MYERS SQUIBB COMPANY-19208412

PATIENT
  Age: 36 Year
  Sex: Female

DRUGS (1)
  1. ABILIFY [Suspect]
     Active Substance: ARIPIPRAZOLE
     Dosage: PRESCRIBED FIFTEEN 5MG TABLETS/MONTH, TO CUT IN HALF (2.5MG DAILY)

REACTIONS (1)
  - Wrong technique in drug usage process [Unknown]
